FAERS Safety Report 23673896 (Version 1)
Quarter: 2024Q1

REPORT INFORMATION
  Report Type: Spontaneous
  Country: CN (occurrence: CN)
  Receive Date: 20240326
  Receipt Date: 20240326
  Transmission Date: 20240410
  Serious: Yes (Other)
  Sender: FDA-Public Use
  Company Number: None

PATIENT
  Age: 54 Year
  Sex: Female
  Weight: 70 kg

DRUGS (4)
  1. CYCLOPHOSPHAMIDE [Suspect]
     Active Substance: CYCLOPHOSPHAMIDE
     Indication: Breast cancer female
     Dosage: 0.9 G, ONE TIME IN ONE DAY, DILUTED WITH 250 ML OF 0.9% SODIUM CHLORIDE, START TIME: 10:30, THIRD CH
     Route: 041
     Dates: start: 20240316, end: 20240316
  2. SODIUM CHLORIDE [Suspect]
     Active Substance: SODIUM CHLORIDE
     Indication: Medication dilution
     Dosage: 0.9% 250 ML, ONE TIME IN ONE DAY, DOSAGE FORM: INJECTION, USED TO DILUTE 0.9 G CYCLOPHOSPHAMIDE, STA
     Route: 041
     Dates: start: 20240316, end: 20240316
  3. WATER FOR INJECTION [Suspect]
     Active Substance: WATER
     Indication: Medication dilution
     Dosage: 150 ML, ONE TIME IN ONE DAY, USED TO DILUTE 150 MG EPIRUBICIN HYDROCHLORIDE, START TIME: 10:30
     Route: 041
     Dates: start: 20240316, end: 20240316
  4. EPIRUBICIN HYDROCHLORIDE [Suspect]
     Active Substance: EPIRUBICIN HYDROCHLORIDE
     Indication: Breast cancer female
     Dosage: 150 MG, ONE TIME IN ONE DAY, DILUTED WITH 150 ML OF STERILE WATER FOR INJECTION, START TIME: 10:30,
     Route: 041
     Dates: start: 20240316, end: 20240316

REACTIONS (2)
  - Myelosuppression [Recovering/Resolving]
  - White blood cell count decreased [Unknown]

NARRATIVE: CASE EVENT DATE: 20240319
